FAERS Safety Report 11965078 (Version 2)
Quarter: 2016Q1

REPORT INFORMATION
  Report Type: Spontaneous
  Country: US (occurrence: US)
  Receive Date: 20160127
  Receipt Date: 20160202
  Transmission Date: 20160526
  Serious: No
  Sender: FDA-Public Use
  Company Number: CHPA2015US014585

PATIENT
  Age: 33 Year
  Sex: Female

DRUGS (1)
  1. LAMISIL [Suspect]
     Active Substance: TERBINAFINE HYDROCHLORIDE
     Indication: BODY TINEA
     Dosage: UNK UNK, QD
     Route: 061
     Dates: start: 2015

REACTIONS (1)
  - Body tinea [Not Recovered/Not Resolved]

NARRATIVE: CASE EVENT DATE: 2015
